FAERS Safety Report 19160306 (Version 2)
Quarter: 2022Q1

REPORT INFORMATION
  Report Type: Spontaneous
  Country: US (occurrence: US)
  Receive Date: 20210420
  Receipt Date: 20220331
  Transmission Date: 20220424
  Serious: Yes (Other)
  Sender: FDA-Public Use
  Company Number: US-GLAXOSMITHKLINE-US2021GSK088814

PATIENT
  Sex: Male

DRUGS (4)
  1. RANITIDINE [Suspect]
     Active Substance: RANITIDINE
     Dosage: 150 MG, U
     Route: 065
     Dates: start: 201601, end: 201807
  2. RANITIDINE [Suspect]
     Active Substance: RANITIDINE
     Dosage: 150 MG, U
     Route: 065
     Dates: start: 201601, end: 201807
  3. RANITIDINE [Suspect]
     Active Substance: RANITIDINE
     Dosage: 150 MG, U
     Route: 065
     Dates: start: 201601, end: 201807
  4. RANITIDINE [Suspect]
     Active Substance: RANITIDINE
     Dosage: 150 MG, U
     Route: 065
     Dates: start: 201601, end: 201807

REACTIONS (1)
  - Haematological malignancy [Unknown]
